FAERS Safety Report 6531816-3 (Version None)
Quarter: 2010Q1

REPORT INFORMATION
  Report Type: 
  Country: None (occurrence: None)
  Receive Date: 20100107
  Receipt Date: 20100107
  Transmission Date: 20100710
  Serious: No
  Sender: FDA-Public Use
  Company Number: None

PATIENT
  Sex: Female

DRUGS (1)
  1. DIVALPROEX SODIUM [Suspect]
     Dosage: 500MG AT BEDTIME PO
     Route: 048
     Dates: start: 20091109, end: 20091216

REACTIONS (1)
  - OEDEMA PERIPHERAL [None]
